FAERS Safety Report 5010755-3 (Version None)
Quarter: 2006Q2

REPORT INFORMATION
  Report Type: 
  Country: None (occurrence: None)
  Receive Date: 20060525
  Receipt Date: 19980120
  Transmission Date: 20061013
  Serious: Yes (Death, Hospitalization)
  Sender: FDA-Public Use
  Company Number: AU-ROCHE-93326

PATIENT
  Age: 69 Year
  Sex: Male
  Weight: 70 kg

DRUGS (2)
  1. ISOTRETINOIN [Suspect]
     Indication: NEOPLASM PROPHYLAXIS
     Route: 048
     Dates: start: 19970314, end: 19980120
  2. VENTOLIN [Concomitant]
     Route: 055
     Dates: start: 19940615, end: 19980125

REACTIONS (2)
  - INTESTINAL OBSTRUCTION [None]
  - PNEUMONIA [None]
